FAERS Safety Report 15166563 (Version 3)
Quarter: 2018Q3

REPORT INFORMATION
  Report Type: Spontaneous
  Country: US (occurrence: US)
  Receive Date: 20180719
  Receipt Date: 20180821
  Transmission Date: 20181010
  Serious: No
  Sender: FDA-Public Use
  Company Number: US-VIFOR (INTERNATIONAL) INC.-VIT-2018-06678

PATIENT
  Sex: Male

DRUGS (4)
  1. ENTRESTO [Concomitant]
     Active Substance: SACUBITRIL\VALSARTAN
  2. VELTASSA [Suspect]
     Active Substance: PATIROMER
     Indication: BLOOD POTASSIUM INCREASED
     Route: 065
     Dates: start: 201805
  3. VELTASSA [Suspect]
     Active Substance: PATIROMER
     Route: 065
     Dates: start: 201806
  4. VELTASSA [Suspect]
     Active Substance: PATIROMER
     Route: 065
     Dates: start: 20180629

REACTIONS (1)
  - Diarrhoea [Unknown]
